FAERS Safety Report 9786244 (Version 1)
Quarter: 2013Q4

REPORT INFORMATION
  Report Type: Spontaneous
  Country: FR (occurrence: FR)
  Receive Date: 20131227
  Receipt Date: 20131227
  Transmission Date: 20140711
  Serious: Yes (Hospitalization)
  Sender: FDA-Public Use
  Company Number: FR-ASTRAZENECA-2013SE93200

PATIENT
  Age: 3722 Week
  Sex: Female

DRUGS (5)
  1. BRILIQUE [Suspect]
     Route: 048
     Dates: start: 20131022, end: 20131028
  2. BRILIQUE [Suspect]
     Route: 048
  3. CALCIPARINE [Suspect]
     Route: 058
     Dates: start: 20131022
  4. KARDEGIC [Suspect]
     Route: 048
     Dates: start: 20131022, end: 20131028
  5. KARDEGIC [Suspect]
     Route: 048

REACTIONS (3)
  - Vascular pseudoaneurysm [Recovered/Resolved]
  - Anaemia [Recovered/Resolved]
  - Vessel puncture site haematoma [Recovered/Resolved]
